FAERS Safety Report 19316476 (Version 1)
Quarter: 2021Q2

REPORT INFORMATION
  Report Type: Spontaneous
  Country: JP (occurrence: JP)
  Receive Date: 20210528
  Receipt Date: 20210528
  Transmission Date: 20210717
  Serious: No
  Sender: FDA-Public Use
  Company Number: JP-LUPIN PHARMACEUTICALS INC.-2021-07994

PATIENT
  Age: 65 Year
  Sex: Male

DRUGS (2)
  1. BETAMETHASONE. [Suspect]
     Active Substance: BETAMETHASONE
     Indication: PAPULOERYTHRODERMA OF OFUJI
     Dosage: 2 MILLIGRAM, QD
     Route: 065
  2. CLOBETASOL PROPIONATE. [Suspect]
     Active Substance: CLOBETASOL PROPIONATE
     Indication: PAPULOERYTHRODERMA OF OFUJI
     Dosage: UNK
     Route: 061

REACTIONS (1)
  - Drug ineffective [Unknown]
